FAERS Safety Report 8475852-9 (Version None)
Quarter: 2012Q2

REPORT INFORMATION
  Report Type: 
  Country: None (occurrence: None)
  Receive Date: 20120628
  Receipt Date: 20120626
  Transmission Date: 20120825
  Serious: Yes (Death)
  Sender: FDA-Public Use
  Company Number: US-TEVA-345361USA

PATIENT
  Sex: Female

DRUGS (1)
  1. FLUDROCORTISONE ACETATE [Suspect]
     Indication: HYPOTENSION

REACTIONS (1)
  - AORTIC DISSECTION [None]
